FAERS Safety Report 5937408-9 (Version None)
Quarter: 2008Q4

REPORT INFORMATION
  Report Type: 
  Country: None (occurrence: None)
  Receive Date: 20081031
  Receipt Date: 20081028
  Transmission Date: 20090506
  Serious: Yes (Hospitalization, Other)
  Sender: FDA-Public Use
  Company Number: US-TEVA-179657USA

PATIENT
  Sex: Male

DRUGS (2)
  1. VERAPAMIL HCL ER TABLETS, 120 MG, 240MG [Suspect]
     Indication: MIGRAINE
     Route: 048
     Dates: start: 20081023, end: 20081024
  2. OMEPRAZOLE [Concomitant]

REACTIONS (2)
  - CONVULSION [None]
  - INTRACRANIAL ANEURYSM [None]
